FAERS Safety Report 4537621-1 (Version None)
Quarter: 2004Q4

REPORT INFORMATION
  Report Type: 
  Country: None (occurrence: None)
  Receive Date: 20041221
  Receipt Date: 20041013
  Transmission Date: 20050328
  Serious: Yes (Hospitalization)
  Sender: FDA-Public Use
  Company Number: A-US2002-00385

PATIENT
  Age: 60 Year
  Sex: Female
  Weight: 44.4 kg

DRUGS (7)
  1. TRACLEER [Suspect]
     Indication: PULMONARY HYPERTENSION
     Dosage: 125 MG, BID, ORAL :
     Route: 048
     Dates: start: 20020128
  2. FLOLAN [Concomitant]
  3. COUMADIN [Concomitant]
  4. ZOLOFT [Concomitant]
  5. ALDACTONE [Concomitant]
  6. DIGOXIN [Concomitant]
  7. ZAROXOLYN [Concomitant]

REACTIONS (2)
  - HAEMATOCRIT DECREASED [None]
  - OEDEMA [None]
